FAERS Safety Report 8174741-7 (Version None)
Quarter: 2012Q1

REPORT INFORMATION
  Report Type: 
  Country: None (occurrence: None)
  Receive Date: 20120229
  Receipt Date: 20120224
  Transmission Date: 20120608
  Serious: Yes (Other)
  Sender: FDA-Public Use
  Company Number: JP-GLAXOSMITHKLINE-B0784429A

PATIENT
  Age: 63 Year
  Sex: Female

DRUGS (3)
  1. SLEEPING PILLS [Concomitant]
  2. PAXIL [Suspect]
     Indication: PRODUCT USED FOR UNKNOWN INDICATION
     Dosage: 30MG PER DAY
     Route: 048
  3. TRANQUILIZER [Concomitant]

REACTIONS (5)
  - DYSARTHRIA [None]
  - TREATMENT NONCOMPLIANCE [None]
  - DEPRESSED LEVEL OF CONSCIOUSNESS [None]
  - MENTAL DISORDER [None]
  - OVERDOSE [None]
